FAERS Safety Report 5378929-X (Version None)
Quarter: 2007Q3

REPORT INFORMATION
  Report Type: 
  Country: None (occurrence: None)
  Receive Date: 20070705
  Receipt Date: 20070412
  Transmission Date: 20080115
  Serious: No
  Sender: FDA-Public Use
  Company Number: A0643925A

PATIENT
  Age: 47 Year
  Sex: Female

DRUGS (2)
  1. PARNATE [Suspect]
     Indication: DEPRESSION
     Dosage: 80MG FOUR TIMES PER DAY
     Route: 048
     Dates: start: 20070101
  2. ATIVAN [Concomitant]

REACTIONS (4)
  - AGITATION [None]
  - DEPRESSION [None]
  - DRUG WITHDRAWAL SYNDROME [None]
  - INSOMNIA [None]
